FAERS Safety Report 9209552 (Version 1)
Quarter: 2013Q2

REPORT INFORMATION
  Report Type: Spontaneous
  Country: AU (occurrence: AU)
  Receive Date: 20130404
  Receipt Date: 20130404
  Transmission Date: 20140414
  Serious: Yes (Other)
  Sender: FDA-Public Use
  Company Number: AU-AMGEN-AUSSP2013022841

PATIENT
  Sex: Female

DRUGS (5)
  1. ENBREL [Suspect]
     Indication: RHEUMATOID ARTHRITIS
     Dosage: UNK
  2. PLAQUENIL                          /00072602/ [Concomitant]
     Dosage: UNK
  3. PREDNISOLONE [Concomitant]
     Dosage: UNK
  4. ARAVA [Concomitant]
     Dosage: UNK
  5. PERINDOPRIL [Concomitant]
     Dosage: UNK

REACTIONS (5)
  - Gait disturbance [Unknown]
  - Arthralgia [Unknown]
  - Joint stiffness [Unknown]
  - Feeling abnormal [Unknown]
  - Visual impairment [Unknown]
